FAERS Safety Report 21470667 (Version 2)
Quarter: 2022Q4

REPORT INFORMATION
  Report Type: Spontaneous
  Country: KR (occurrence: KR)
  Receive Date: 20221018
  Receipt Date: 20221103
  Transmission Date: 20230113
  Serious: Yes (Hospitalization)
  Sender: FDA-Public Use
  Company Number: KR-SUN PHARMACEUTICAL INDUSTRIES LTD-2022RR-359565

PATIENT
  Age: 32 Year
  Sex: Male

DRUGS (7)
  1. LYRICA [Suspect]
     Active Substance: PREGABALIN
     Indication: Pain in extremity
     Dosage: 150 MILLIGRAM, UNK
     Route: 065
  2. ABILIFY [Suspect]
     Active Substance: ARIPIPRAZOLE
     Indication: Dyskinesia
     Dosage: 3 MILLIGRAM, UNK
     Route: 065
  3. ABILIFY [Suspect]
     Active Substance: ARIPIPRAZOLE
     Dosage: 10 MILLIGRAM, UNK
  4. RIVOTRIL [Suspect]
     Active Substance: CLONAZEPAM
     Indication: Dyskinesia
     Dosage: 3 MILLIGRAM, UNK
     Route: 065
  5. PROPRANOLOL [Suspect]
     Active Substance: PROPRANOLOL HYDROCHLORIDE
     Indication: Dyskinesia
     Dosage: UNK
     Route: 065
  6. PROCYCLIDINE HYDROCHLORIDE [Suspect]
     Active Substance: PROCYCLIDINE HYDROCHLORIDE
     Indication: Product used for unknown indication
     Dosage: UNK
     Route: 065
  7. CEFTRIAXONE [Concomitant]
     Active Substance: CEFTRIAXONE
     Indication: Pharyngotonsillitis
     Dosage: UNK
     Route: 065

REACTIONS (6)
  - Depressed mood [Unknown]
  - Anxiety [Unknown]
  - Insomnia [Unknown]
  - Dysuria [Unknown]
  - Condition aggravated [Unknown]
  - Therapeutic response unexpected [Unknown]
